FAERS Safety Report 6649467-9 (Version None)
Quarter: 2010Q1

REPORT INFORMATION
  Report Type: 
  Country: None (occurrence: None)
  Receive Date: 20100322
  Receipt Date: 20100315
  Transmission Date: 20100710
  Serious: Yes (Death, Hospitalization)
  Sender: FDA-Public Use
  Company Number: 2009AC000401

PATIENT
  Age: 73 Year
  Sex: Male

DRUGS (33)
  1. DIGOXIN [Suspect]
     Dosage: 125 MCG;PO
     Route: 048
     Dates: start: 20030101
  2. DIGOXIN [Suspect]
     Indication: ATRIAL FIBRILLATION
     Dosage: .125 MG;QD;PO
     Route: 048
     Dates: start: 20050801, end: 20080404
  3. DIGOXIN [Suspect]
     Dates: start: 20080620, end: 20080629
  4. FUROSEMIDE [Concomitant]
  5. TOPROL-XL [Concomitant]
  6. NEXIUM [Concomitant]
  7. SUCRALFATE [Concomitant]
  8. FLOVENT [Concomitant]
  9. SPIRIVA [Concomitant]
  10. LISINOPRIL [Concomitant]
  11. POTASSIJM CHLORIDE [Concomitant]
  12. CARTIA XT [Concomitant]
  13. XIBROM [Concomitant]
  14. DILTIAZEM HCL [Concomitant]
  15. PREVPAC [Concomitant]
  16. WARFARIN SODIUM [Concomitant]
  17. METOPROLOL TARTRATE [Concomitant]
  18. NITROFURANTOIN [Concomitant]
  19. SPIRONOLACTONE [Concomitant]
  20. DIOVAN [Concomitant]
  21. LASIX [Concomitant]
  22. FERROUS SULFATE TAB [Concomitant]
  23. K-DUR [Concomitant]
  24. ZAROXOLYN [Concomitant]
  25. CARAFATE [Concomitant]
  26. XOPENEX [Concomitant]
  27. ATROVENT [Concomitant]
  28. LOTRIMIN [Concomitant]
  29. NEO-SYNEPHRINOL [Concomitant]
  30. ALBUMIN (HUMAN) [Concomitant]
  31. ATROPHINE [Concomitant]
  32. EPINEPHRINE [Concomitant]
  33. COUMADIN [Concomitant]

REACTIONS (27)
  - ANAEMIA [None]
  - AORTIC STENOSIS [None]
  - ATRIAL FIBRILLATION [None]
  - BRADYCARDIA [None]
  - CARDIAC FAILURE CONGESTIVE [None]
  - CELLULITIS [None]
  - CYANOSIS [None]
  - DIZZINESS [None]
  - ECONOMIC PROBLEM [None]
  - EMOTIONAL DISTRESS [None]
  - GASTRIC ULCER [None]
  - GASTROOESOPHAGEAL REFLUX DISEASE [None]
  - HAEMOGLOBIN DECREASED [None]
  - HYPOTENSION [None]
  - ILL-DEFINED DISORDER [None]
  - INJURY [None]
  - LOSS OF CONSCIOUSNESS [None]
  - LOSS OF EMPLOYMENT [None]
  - NOCTURIA [None]
  - PAIN [None]
  - PULMONARY HYPERTENSION [None]
  - RENAL FAILURE ACUTE [None]
  - SLEEP APNOEA SYNDROME [None]
  - SOCIAL AVOIDANT BEHAVIOUR [None]
  - THERAPEUTIC AGENT TOXICITY [None]
  - UPPER GASTROINTESTINAL HAEMORRHAGE [None]
  - VISION BLURRED [None]
